FAERS Safety Report 20812514 (Version 2)
Quarter: 2022Q2

REPORT INFORMATION
  Report Type: Spontaneous
  Country: US (occurrence: US)
  Receive Date: 20220511
  Receipt Date: 20220531
  Transmission Date: 20220720
  Serious: No
  Sender: FDA-Public Use
  Company Number: US-BAUSCH-BL-2022-011023

PATIENT
  Sex: Female

DRUGS (1)
  1. OPCON-A [Suspect]
     Active Substance: NAPHAZOLINE HYDROCHLORIDE\PHENIRAMINE MALEATE
     Indication: Product used for unknown indication
     Route: 065
     Dates: start: 20220429, end: 20220430

REACTIONS (4)
  - Instillation site pruritus [Unknown]
  - Instillation site pain [Unknown]
  - Instillation site irritation [Unknown]
  - Instillation site erythema [Unknown]

NARRATIVE: CASE EVENT DATE: 20220401
